FAERS Safety Report 7067423-6 (Version None)
Quarter: 2010Q4

REPORT INFORMATION
  Report Type: 
  Country: None (occurrence: None)
  Receive Date: 20101026
  Receipt Date: 20101026
  Transmission Date: 20110411
  Serious: No
  Sender: FDA-Public Use
  Company Number: None

PATIENT
  Sex: Female
  Weight: 14.9687 kg

DRUGS (1)
  1. CHILDREN'S COLD + COUGH AGES 6 AND UP EQUATE [Suspect]
     Indication: ANTITUSSIVE THERAPY
     Dosage: 1.85 ML MORNING AND NIGHT PO
     Route: 048
     Dates: start: 20101015, end: 20101020

REACTIONS (1)
  - RASH [None]
